FAERS Safety Report 11787301 (Version 1)
Quarter: 2015Q4

REPORT INFORMATION
  Report Type: Spontaneous
  Country: US (occurrence: US)
  Receive Date: 20151130
  Receipt Date: 20151130
  Transmission Date: 20160305
  Serious: Yes (Other)
  Sender: FDA-Public Use
  Company Number: US-SA-2015SA190605

PATIENT
  Sex: Female

DRUGS (4)
  1. TOUJEO [Suspect]
     Active Substance: INSULIN GLARGINE
     Route: 065
  2. VICTOZA [Concomitant]
     Active Substance: LIRAGLUTIDE
  3. SOLOSTAR [Concomitant]
     Active Substance: DEVICE
  4. VICTOZA [Concomitant]
     Active Substance: LIRAGLUTIDE

REACTIONS (4)
  - Weight increased [Recovered/Resolved]
  - Oedema peripheral [Recovered/Resolved]
  - Dyspnoea [Recovered/Resolved]
  - Cardiac failure congestive [Recovered/Resolved]
